FAERS Safety Report 13545273 (Version 2)
Quarter: 2017Q2

REPORT INFORMATION
  Report Type: Spontaneous
  Country: JP (occurrence: JP)
  Receive Date: 20170515
  Receipt Date: 20170522
  Transmission Date: 20170830
  Serious: Yes (Hospitalization, Other)
  Sender: FDA-Public Use
  Company Number: JP-009507513-1705JPN001015J

PATIENT
  Age: 69 Year
  Sex: Female
  Weight: 31 kg

DRUGS (8)
  1. REMERON [Suspect]
     Active Substance: MIRTAZAPINE
     Indication: DEPRESSION
     Dosage: 15 MG, QD
     Route: 048
     Dates: start: 20160901, end: 20170215
  2. ZOLPIDEM TARTRATE OD [Concomitant]
     Active Substance: ZOLPIDEM TARTRATE
     Dosage: 10 MG, UNK
     Route: 048
     Dates: start: 20160813
  3. REMERON [Suspect]
     Active Substance: MIRTAZAPINE
     Dosage: 15 MG, BID
     Route: 048
     Dates: start: 20170216, end: 20170316
  4. ATELEC [Concomitant]
     Active Substance: CILNIDIPINE
     Dosage: 10 MG, UNK
     Route: 048
     Dates: start: 20160813
  5. RIVOTRIL [Suspect]
     Active Substance: CLONAZEPAM
     Dosage: 0.5 UNK, UNK
     Route: 048
     Dates: start: 20160929
  6. MAGNESIUM OXIDE. [Suspect]
     Active Substance: MAGNESIUM OXIDE
     Dosage: UNK
     Route: 048
     Dates: start: 20160929
  7. NITRAZEPAM [Concomitant]
     Active Substance: NITRAZEPAM
     Dosage: 5 MG, UNK
     Route: 048
     Dates: start: 20160813
  8. AROTINOLOL HYDROCHLORIDE [Suspect]
     Active Substance: AROTINOLOL HYDROCHLORIDE
     Dosage: UNK
     Route: 048
     Dates: start: 20160901

REACTIONS (2)
  - Dysuria [Not Recovered/Not Resolved]
  - Postrenal failure [Recovering/Resolving]

NARRATIVE: CASE EVENT DATE: 20170330
